FAERS Safety Report 6262822-4 (Version None)
Quarter: 2009Q3

REPORT INFORMATION
  Report Type: 
  Country: None (occurrence: None)
  Receive Date: 20090708
  Receipt Date: 20090623
  Transmission Date: 20100115
  Serious: Yes (Other)
  Sender: FDA-Public Use
  Company Number: 239118J08USA

PATIENT
  Age: 55 Year
  Sex: Male
  Weight: 66 kg

DRUGS (3)
  1. REBIF [Suspect]
     Indication: MULTIPLE SCLEROSIS
     Dosage: 22 MCG, 3 IN 1 WEEKS, SUBCUTANEOUS
     Route: 058
     Dates: start: 20071022, end: 20090601
  2. DEPAKOTE [Concomitant]
  3. AMANTADINE HCL [Concomitant]

REACTIONS (3)
  - ACTINIC KERATOSIS [None]
  - BASAL CELL CARCINOMA [None]
  - RASH PAPULAR [None]
